FAERS Safety Report 16666548 (Version 4)
Quarter: 2019Q3

REPORT INFORMATION
  Report Type: Spontaneous
  Country: JP (occurrence: JP)
  Receive Date: 20190805
  Receipt Date: 20190920
  Transmission Date: 20191004
  Serious: Yes (Other)
  Sender: FDA-Public Use
  Company Number: JP-AMGEN-JPNSP2019118258

PATIENT
  Age: 90 Year
  Sex: Male

DRUGS (19)
  1. THEO-DUR [Concomitant]
     Active Substance: THEOPHYLLINE ANHYDROUS
     Indication: ASTHMA
     Dosage: 200 MG, QD, BEFORE BEDTIME
     Route: 048
     Dates: start: 20190404
  2. FEBURIC [Concomitant]
     Active Substance: FEBUXOSTAT
     Indication: HYPERURICAEMIA
     Dosage: 10 MG, QD, AFTER BREAKFAST
     Route: 048
     Dates: start: 20190404
  3. SINGULAIR [Concomitant]
     Active Substance: MONTELUKAST SODIUM
     Indication: ASTHMA
     Dosage: 10 MG, QD, BEFORE BEDTIME
     Route: 048
     Dates: start: 20190404
  4. SPIRIVA [Concomitant]
     Active Substance: TIOTROPIUM BROMIDE MONOHYDRATE
     Indication: ASTHMA
     Dosage: 1 DOSAGE FORM, QD
     Dates: start: 20190404
  5. SODIUM BICARBONATE. [Concomitant]
     Active Substance: SODIUM BICARBONATE
     Indication: CHRONIC KIDNEY DISEASE
     Dosage: 0.5 G, BID, AFTER BREAKFAST AND DINNER
     Route: 048
     Dates: start: 20190619
  6. LUNESTA [Concomitant]
     Active Substance: ESZOPICLONE
     Indication: INSOMNIA
     Dosage: 2 MG, QD, BEFORE BEDTIME
     Route: 048
     Dates: start: 20190404
  7. TAKECAB [Concomitant]
     Active Substance: VONOPRAZAN FUMURATE
     Indication: CHRONIC GASTRITIS
     Dosage: 10 MG, QD, AFTER BREAKFAST
     Route: 048
     Dates: start: 20190404
  8. AMBROXOL HYDROCHLORIDE [Concomitant]
     Active Substance: AMBROXOL HYDROCHLORIDE
     Indication: ASTHMA
     Dosage: 45 MG, QD, AFTER DINNER
     Route: 048
     Dates: start: 20190404
  9. ISOSORBIDE MONONITRATE. [Concomitant]
     Active Substance: ISOSORBIDE MONONITRATE
     Indication: ANGINA PECTORIS
     Dosage: 20 MG, QD, AFTER BREAKFAST
     Route: 048
     Dates: start: 20190404
  10. FUROSEMIDE. [Concomitant]
     Active Substance: FUROSEMIDE
     Indication: FLUID RETENTION
     Dosage: 40 MG, QD, AFTER BREAKFAST
     Route: 048
     Dates: start: 20190404
  11. NESP [Suspect]
     Active Substance: DARBEPOETIN ALFA
     Indication: NEPHROGENIC ANAEMIA
     Dosage: 120 MICROGRAM, ONCE EVERY 2 TO 4 WEEKS
     Route: 058
     Dates: start: 20190411, end: 20190411
  12. NESP [Suspect]
     Active Substance: DARBEPOETIN ALFA
     Dosage: 120 MICROGRAM, ONCE EVERY 2 TO 4 WEEKS
     Route: 058
     Dates: start: 20190612, end: 20190612
  13. NESP [Suspect]
     Active Substance: DARBEPOETIN ALFA
     Dosage: 120 MICROGRAM, ONCE EVERY 2 TO 4 WEEKS
     Route: 058
     Dates: start: 20190515, end: 20190515
  14. LYRICA [Concomitant]
     Active Substance: PREGABALIN
     Indication: NEURALGIA
     Dosage: 25 MG, QD, AFTER DINNER
     Route: 048
     Dates: start: 20190404
  15. TAKECAB [Concomitant]
     Active Substance: VONOPRAZAN FUMURATE
     Indication: GASTRIC ULCER
     Dosage: UNK
  16. FLUTIFORM [Concomitant]
     Active Substance: FLUTICASONE PROPIONATE\FORMOTEROL FUMARATE
     Indication: ASTHMA
     Dosage: 1 DOSAGE FORM, BID
     Dates: start: 20190404
  17. SODIUM BICARBONATE. [Concomitant]
     Active Substance: SODIUM BICARBONATE
     Indication: METABOLIC ACIDOSIS
     Dosage: UNK
  18. VASOLAN [Concomitant]
     Indication: ATRIAL FIBRILLATION
     Dosage: 40 MG, BID, AFTER BREAKFAST AND DINNER
     Route: 048
     Dates: start: 20190404
  19. MAGNESIUM OXIDE. [Concomitant]
     Active Substance: MAGNESIUM OXIDE
     Indication: CONSTIPATION
     Dosage: 330 MG, QD AFTER BREAKFAST
     Route: 048
     Dates: start: 20190404

REACTIONS (1)
  - Aplasia pure red cell [Recovered/Resolved]

NARRATIVE: CASE EVENT DATE: 20190626
